FAERS Safety Report 5307009-4 (Version None)
Quarter: 2007Q2

REPORT INFORMATION
  Report Type: 
  Country: None (occurrence: None)
  Receive Date: 20070419
  Receipt Date: 20070412
  Transmission Date: 20071010
  Serious: Yes (Hospitalization)
  Sender: FDA-Public Use
  Company Number: GXBR2007US00928

PATIENT
  Age: 83 Year
  Sex: Female
  Weight: 54.4 kg

DRUGS (1)
  1. AMIODARONE HCL [Suspect]
     Indication: ARRHYTHMIA
     Dosage: 200 MG, Q8H, ORAL
     Route: 048
     Dates: start: 20070101

REACTIONS (3)
  - CARDIAC FAILURE CONGESTIVE [None]
  - CARDIAC VALVE DISEASE [None]
  - PULMONARY OEDEMA [None]
